FAERS Safety Report 10253170 (Version 3)
Quarter: 2014Q3

REPORT INFORMATION
  Report Type: Spontaneous
  Country: DE (occurrence: DE)
  Receive Date: 20140623
  Receipt Date: 20140724
  Transmission Date: 20150326
  Serious: Yes (Hospitalization)
  Sender: FDA-Public Use
  Company Number: DE-SA-2014SA078874

PATIENT
  Sex: Male

DRUGS (15)
  1. CLEXANE [Suspect]
     Active Substance: ENOXAPARIN SODIUM
     Indication: PROPHYLAXIS
     Route: 058
     Dates: start: 201203, end: 201203
  2. CLEXANE [Suspect]
     Active Substance: ENOXAPARIN SODIUM
     Indication: PROPHYLAXIS
     Route: 058
     Dates: start: 201203, end: 201203
  3. ATACAND PLUS /GFR/ [Concomitant]
     Dosage: 64/50MG; DAILY INTAKE FOR 3 YEARS PRIOR TO EVENT, INDICATION AND EXACT THERAPY DATES NOT PROVIDED
  4. NITRENDIPINE [Concomitant]
     Active Substance: NITRENDIPINE
     Dosage: DAILY INTAKE FOR 3 YEARS PRIOR TO EVENT, INDICATION AND EXACT THERAPY DATES NOT PROVIDED
  5. HEPARIN [Concomitant]
     Active Substance: HEPARIN SODIUM
     Dosage: FULL HEPARIN DOSE THERAPY WAS STARTED, WHICH WAS SWITCHED TO LOW-MOLECULAR-WEIGHT HEPARIN LATER
  6. ASPIRIN. [Concomitant]
     Active Substance: ASPIRIN
     Dosage: DAILY INTAKE FOR 3 YEARS PRIOR TO EVENT, INDICATION AND EXACT THERAPY DATES NOT PROVIDED
  7. IBUFLAM [Concomitant]
     Active Substance: IBUPROFEN
     Dosage: DAILY INTAKE FOR 3 YEARS PRIOR TO EVENT, INDICATION AND EXACT THERAPY DATES NOT PROVIDED
  8. ASPIRIN PROTECT [Concomitant]
     Active Substance: ASPIRIN
  9. SIMVASTATIN. [Concomitant]
     Active Substance: SIMVASTATIN
     Dosage: DAILY INTAKE FOR 3 YEARS PRIOR TO EVENT, INDICATION AND EXACT THERAPY DATES NOT PROVIDED
  10. LYRICA [Concomitant]
     Active Substance: PREGABALIN
     Dosage: 25MG
     Dates: start: 20120312
  11. ALLOPURINOL. [Concomitant]
     Active Substance: ALLOPURINOL
     Dosage: 100MG
     Dates: start: 20120312
  12. LOCOL [Concomitant]
     Active Substance: FLUVASTATIN SODIUM
     Dates: start: 20120312
  13. HEPARIN [Concomitant]
     Active Substance: HEPARIN SODIUM
  14. MONO-EMBOLEX [Concomitant]
     Active Substance: CERTOPARIN SODIUM
     Indication: HEPARIN NEUTRALISATION THERAPY
     Dosage: MONO-EMBOLEX (CERTOPARIN) 3000 IU
  15. HYDROCHLOROTHIAZIDE. [Concomitant]
     Active Substance: HYDROCHLOROTHIAZIDE
     Dosage: 25MG IN MORNING AND .5 IN NIGHT.
     Dates: start: 20120312

REACTIONS (7)
  - Gait disturbance [Recovering/Resolving]
  - Fall [Recovering/Resolving]
  - Swelling [Unknown]
  - Tobacco abuse [Unknown]
  - Paraesthesia [Recovering/Resolving]
  - Nystagmus [Unknown]
  - Hyperuricaemia [Unknown]

NARRATIVE: CASE EVENT DATE: 20140309
